FAERS Safety Report 7442747-9 (Version None)
Quarter: 2011Q2

REPORT INFORMATION
  Report Type: 
  Country: None (occurrence: None)
  Receive Date: 20110428
  Receipt Date: 20110420
  Transmission Date: 20111010
  Serious: Yes (Life-Threatening)
  Sender: FDA-Public Use
  Company Number: JP-ROXANE LABORATORIES, INC.-2011-RO-00552RO

PATIENT
  Age: 76 Year
  Sex: Female
  Weight: 43 kg

DRUGS (11)
  1. METHOTREXATE [Suspect]
     Indication: RHEUMATOID ARTHRITIS
     Dates: start: 20081101, end: 20090201
  2. METHOTREXATE [Suspect]
     Dates: start: 20090201, end: 20090701
  3. PREDNISOLONE [Suspect]
     Dosage: 3 MG
  4. LOXOPROFEN SODIUM [Suspect]
  5. RABEPRAZOLE SODIUM [Suspect]
  6. TORSEMIDE [Suspect]
  7. AMLODIPINE [Suspect]
  8. PREDNISOLONE [Suspect]
     Indication: RHEUMATOID ARTHRITIS
     Dosage: 6 MG
  9. FOLIC ACID [Suspect]
  10. ALFACALCIDOL [Suspect]
  11. RISEDRONATE SODIUM HYDRATE [Suspect]

REACTIONS (2)
  - INTERSTITIAL LUNG DISEASE [None]
  - RESPIRATORY FAILURE [None]
